FAERS Safety Report 6257545-1 (Version None)
Quarter: 2009Q3

REPORT INFORMATION
  Report Type: 
  Country: None (occurrence: None)
  Receive Date: 20090706
  Receipt Date: 20090625
  Transmission Date: 20100115
  Serious: Yes (Other)
  Sender: FDA-Public Use
  Company Number: US-BAXTER-2009BH010604

PATIENT
  Sex: Female
  Weight: 65 kg

DRUGS (8)
  1. LORAZEPAM [Suspect]
     Indication: MAJOR DEPRESSION
     Route: 065
     Dates: end: 20000101
  2. DEPAKOTE [Suspect]
     Indication: MAJOR DEPRESSION
     Route: 065
     Dates: end: 20000101
  3. LIOTHYRONINE SODIUM [Suspect]
     Indication: DRUG USE FOR UNKNOWN INDICATION
     Route: 065
  4. LITHIUM [Suspect]
     Indication: DEPRESSION
     Route: 065
     Dates: end: 20000101
  5. NEURONTIN [Suspect]
     Indication: DEPRESSION
     Route: 065
     Dates: end: 20000101
  6. PAXIL [Suspect]
     Indication: DEPRESSION
     Route: 048
     Dates: start: 19980101, end: 20000101
  7. SERZONE [Suspect]
     Indication: DEPRESSION
     Route: 065
     Dates: end: 20000101
  8. LEVOTHYROXINE SODIUM [Suspect]
     Indication: DRUG USE FOR UNKNOWN INDICATION
     Route: 065

REACTIONS (6)
  - ASTHENIA [None]
  - DRUG INEFFECTIVE [None]
  - HYPERSENSITIVITY [None]
  - HYPERSOMNIA [None]
  - LOSS OF CONSCIOUSNESS [None]
  - WEIGHT INCREASED [None]
